FAERS Safety Report 9999148 (Version 1)
Quarter: 2014Q1

REPORT INFORMATION
  Report Type: Spontaneous
  Country: US (occurrence: None)
  Receive Date: 20140311
  Receipt Date: 20140311
  Transmission Date: 20141002
  Serious: No
  Sender: FDA-Public Use
  Company Number: None

PATIENT
  Age: 75 Year
  Sex: Male
  Weight: 62.6 kg

DRUGS (1)
  1. AMOXICILLIN, 875 MG, SANDOZ [Suspect]
     Indication: INFECTION
     Dosage: TAKEN BY MOUTH
     Dates: start: 20140228, end: 20140301

REACTIONS (6)
  - Dizziness [None]
  - Balance disorder [None]
  - Blood glucose increased [None]
  - Asthenia [None]
  - Abasia [None]
  - Back pain [None]
